FAERS Safety Report 4862288-2 (Version None)
Quarter: 2005Q4

REPORT INFORMATION
  Report Type: 
  Country: None (occurrence: None)
  Receive Date: 20051221
  Receipt Date: 20050927
  Transmission Date: 20060501
  Serious: Yes (Other)
  Sender: FDA-Public Use
  Company Number: 2005UW14680

PATIENT
  Age: 5 Year
  Sex: Male

DRUGS (1)
  1. EMLA [Suspect]
     Indication: IMMUNISATION
     Route: 061

REACTIONS (3)
  - BRADYCARDIA [None]
  - OVERDOSE [None]
  - SOMNOLENCE [None]
